FAERS Safety Report 12254895 (Version 1)
Quarter: 2016Q2

REPORT INFORMATION
  Report Type: Spontaneous
  Country: US (occurrence: US)
  Receive Date: 20160411
  Receipt Date: 20160411
  Transmission Date: 20160815
  Serious: No
  Sender: FDA-Public Use
  Company Number: US-PRESTIUM-2015RN000178

PATIENT
  Age: 65 Year
  Sex: Male

DRUGS (1)
  1. VUSION [Suspect]
     Active Substance: MICONAZOLE NITRATE\PETROLATUM\ZINC OXIDE
     Indication: RASH
     Dosage: 5G SAMPLE, UNK
     Route: 061

REACTIONS (3)
  - Drug ineffective [Recovering/Resolving]
  - Drug administered to patient of inappropriate age [Recovered/Resolved]
  - Intentional product use issue [Recovered/Resolved]
